FAERS Safety Report 8376439-9 (Version None)
Quarter: 2012Q2

REPORT INFORMATION
  Report Type: 
  Country: None (occurrence: None)
  Receive Date: 20120522
  Receipt Date: 20120507
  Transmission Date: 20120825
  Serious: Yes (Other)
  Sender: FDA-Public Use
  Company Number: US-ELI_LILLY_AND_COMPANY-US201205003757

PATIENT

DRUGS (2)
  1. GEMCITABINE HYDROCHLORIDE [Suspect]
     Indication: PANCREATIC CARCINOMA NON-RESECTABLE
     Dosage: 200 MG/M2, WEEKLY (1/W)
  2. OXALIPLATIN [Concomitant]
     Indication: PANCREATIC CARCINOMA NON-RESECTABLE
     Dosage: 45 MG/M2, OTHER

REACTIONS (2)
  - TRANSAMINASES INCREASED [None]
  - CHOLANGITIS [None]
